FAERS Safety Report 13545124 (Version 1)
Quarter: 2017Q2

REPORT INFORMATION
  Report Type: Spontaneous
  Country: US (occurrence: US)
  Receive Date: 20170515
  Receipt Date: 20170515
  Transmission Date: 20170830
  Serious: Yes (Hospitalization)
  Sender: FDA-Public Use
  Company Number: None

PATIENT
  Age: 65 Year
  Sex: Female
  Weight: 84.1 kg

DRUGS (1)
  1. PACLITAXEL. [Suspect]
     Active Substance: PACLITAXEL
     Indication: BREAST CANCER STAGE IV
     Dosage: DOSE - 80MG/M2 (174MG)
     Route: 042
     Dates: start: 20170424

REACTIONS (2)
  - Encephalopathy [None]
  - Cardio-respiratory arrest [None]

NARRATIVE: CASE EVENT DATE: 20170424
